FAERS Safety Report 15815231 (Version 1)
Quarter: 2019Q1

REPORT INFORMATION
  Report Type: Spontaneous
  Country: PT (occurrence: PT)
  Receive Date: 20190112
  Receipt Date: 20190112
  Transmission Date: 20190417
  Serious: Yes (Disabling)
  Sender: FDA-Public Use
  Company Number: PT-ACCORD-101854

PATIENT
  Age: 94 Year
  Sex: Female

DRUGS (1)
  1. LETROZOL ACCORD [Suspect]
     Active Substance: LETROZOLE
     Indication: CANCER HORMONAL THERAPY
     Route: 048
     Dates: start: 20180309, end: 20180312

REACTIONS (4)
  - Muscular weakness [Recovered/Resolved]
  - Hypotension [Recovered/Resolved]
  - Product substitution issue [Recovered/Resolved]
  - Malaise [Recovered/Resolved]

NARRATIVE: CASE EVENT DATE: 20180309
